FAERS Safety Report 23304897 (Version 1)
Quarter: 2023Q4

REPORT INFORMATION
  Report Type: Spontaneous
  Country: US (occurrence: US)
  Receive Date: 20231218
  Receipt Date: 20231218
  Transmission Date: 20240110
  Serious: No
  Sender: FDA-Public Use
  Company Number: US-GSKCCFUS-Case-01877792_AE-104811

PATIENT
  Age: 67 Year
  Sex: Male

DRUGS (1)
  1. VALTREX [Suspect]
     Active Substance: VALACYCLOVIR HYDROCHLORIDE
     Indication: Genital herpes
     Dosage: 500 MG, QD
     Route: 048
     Dates: start: 202307, end: 202311

REACTIONS (3)
  - Pollakiuria [Recovering/Resolving]
  - Dry mouth [Recovering/Resolving]
  - Blood urea increased [Unknown]
